FAERS Safety Report 24057664 (Version 3)
Quarter: 2024Q3

REPORT INFORMATION
  Report Type: Report from Study
  Country: FR (occurrence: FR)
  Receive Date: 20240706
  Receipt Date: 20240801
  Transmission Date: 20241016
  Serious: Yes (Death, Other)
  Sender: TAKEDA
  Company Number: FR-TAKEDA-2024TUS065769

PATIENT
  Sex: Male

DRUGS (1)
  1. FRUQUINTINIB [Suspect]
     Active Substance: FRUQUINTINIB
     Indication: Colorectal cancer metastatic
     Dosage: 5 MILLIGRAM
     Route: 065

REACTIONS (1)
  - Colorectal cancer metastatic [Fatal]

NARRATIVE: CASE EVENT DATE: 20240702
